FAERS Safety Report 10057124 (Version 2)
Quarter: 2014Q2

REPORT INFORMATION
  Report Type: Report from Study
  Country: UA (occurrence: UA)
  Receive Date: 20140403
  Receipt Date: 20140418
  Transmission Date: 20141212
  Serious: Yes (Death, Life-Threatening, Disabling)
  Sender: FDA-Public Use
  Company Number: UA-TEVA-472751USA

PATIENT
  Age: 63 Year
  Sex: Male

DRUGS (3)
  1. BENDAMUSTINE [Suspect]
     Indication: PLASMA CELL MYELOMA
     Route: 042
     Dates: start: 20140131
  2. BORTEZOMIB [Suspect]
     Indication: PRODUCT USED FOR UNKNOWN INDICATION
     Route: 065
     Dates: start: 20140131
  3. METHYLPREDNISOLONE [Suspect]
     Indication: PRODUCT USED FOR UNKNOWN INDICATION
     Route: 065
     Dates: start: 20140131

REACTIONS (2)
  - Cardiopulmonary failure [Fatal]
  - Plasma cell myeloma [Unknown]
